FAERS Safety Report 18810626 (Version 2)
Quarter: 2021Q1

REPORT INFORMATION
  Report Type: Spontaneous
  Country: BY (occurrence: BY)
  Receive Date: 20210129
  Receipt Date: 20210211
  Transmission Date: 20210419
  Serious: Yes (Other)
  Sender: FDA-Public Use
  Company Number: BY-JNJFOC-20210128779

PATIENT
  Age: 32 Year
  Sex: Female
  Weight: 61 kg

DRUGS (11)
  1. PYRIDOXINE [Concomitant]
     Active Substance: PYRIDOXINE
     Route: 048
     Dates: start: 20181206, end: 20200414
  2. CLOFAZIMINE [Suspect]
     Active Substance: CLOFAZIMINE
     Indication: TUBERCULOSIS
     Route: 048
     Dates: start: 20181206, end: 20200414
  3. DELAMANID [Suspect]
     Active Substance: DELAMANID
     Indication: TUBERCULOSIS
     Route: 048
     Dates: start: 20190116, end: 20200414
  4. ESSENCIKAPS [Concomitant]
     Route: 048
     Dates: start: 20200217, end: 20200219
  5. PHENIBUT [Concomitant]
     Active Substance: 4-AMINO-3-PHENYLBUTYRIC ACID
     Route: 048
     Dates: start: 20200220, end: 20200310
  6. HEPASIL [Concomitant]
     Route: 048
     Dates: start: 20200219, end: 20200317
  7. LINEZOLID. [Suspect]
     Active Substance: LINEZOLID
     Indication: TUBERCULOSIS
     Route: 048
     Dates: start: 20181206, end: 20200414
  8. ETHAMBUTOL [Suspect]
     Active Substance: ETHAMBUTOL HYDROCHLORIDE
     Indication: TUBERCULOSIS
     Route: 048
     Dates: start: 20190116, end: 20200414
  9. RANITIDINE. [Concomitant]
     Active Substance: RANITIDINE
     Route: 048
     Dates: start: 20190213, end: 20190221
  10. ESSENCIKAPS [Concomitant]
     Route: 048
     Dates: start: 20181216, end: 20190417
  11. SIRTURO [Suspect]
     Active Substance: BEDAQUILINE FUMARATE
     Indication: TUBERCULOSIS
     Route: 048
     Dates: start: 20181206, end: 20200414

REACTIONS (3)
  - Anaemia [Not Recovered/Not Resolved]
  - Off label use [Unknown]
  - Product use issue [Unknown]

NARRATIVE: CASE EVENT DATE: 20190829
